FAERS Safety Report 7099857-8 (Version None)
Quarter: 2010Q4

REPORT INFORMATION
  Report Type: 
  Country: None (occurrence: None)
  Receive Date: 20101112
  Receipt Date: 20101102
  Transmission Date: 20110411
  Serious: Yes (Hospitalization)
  Sender: FDA-Public Use
  Company Number: PHHO2006US00971

PATIENT
  Sex: Female
  Weight: 43 kg

DRUGS (17)
  1. CERTICAN [Suspect]
     Indication: RENAL TRANSPLANT
     Dosage: 2.25 MG/EVENING
     Route: 048
     Dates: start: 20041217, end: 20041217
  2. CERTICAN [Suspect]
     Dosage: 2.25 MG, BID
     Route: 048
     Dates: start: 20041218, end: 20051207
  3. CERTICAN [Suspect]
     Dosage: 4.25 MG/DAILY
     Route: 048
     Dates: start: 20051208, end: 20051208
  4. CERTICAN [Suspect]
     Dosage: 2 MG, BID
     Route: 048
     Dates: start: 20051209, end: 20060109
  5. CERTICAN [Suspect]
     Dosage: 2 MG IN MORNING
     Route: 048
     Dates: start: 20060110, end: 20060110
  6. CERTICAN [Suspect]
     Dosage: 2 MG EVENING
     Route: 048
     Dates: start: 20060111, end: 20060111
  7. CERTICAN [Suspect]
     Dosage: 2 MG, BID
     Route: 048
     Dates: start: 20060112
  8. CERTICAN [Suspect]
     Dosage: 2 MG, BID
     Route: 048
     Dates: start: 20070425, end: 20100906
  9. MYFORTIC [Suspect]
     Indication: RENAL TRANSPLANT
     Dosage: 540 MG, BID
     Route: 048
     Dates: start: 20060905
  10. MYFORTIC [Suspect]
     Dosage: 360 MG, BID
     Route: 048
     Dates: start: 20070426
  11. CELLCEPT [Suspect]
     Indication: RENAL TRANSPLANT
  12. BACTRIM [Concomitant]
  13. LIPITOR [Concomitant]
  14. DARBEPOETIN ALFA [Concomitant]
  15. MULTI-VITAMINS [Concomitant]
  16. ARANESP [Concomitant]
  17. RED BLOOD CELLS [Concomitant]

REACTIONS (16)
  - ABDOMINAL PAIN [None]
  - DIARRHOEA [None]
  - DIZZINESS [None]
  - DYSPNOEA [None]
  - FATIGUE [None]
  - GASTROENTERITIS VIRAL [None]
  - GASTROINTESTINAL INFLAMMATION [None]
  - HIATUS HERNIA [None]
  - IRON DEFICIENCY ANAEMIA [None]
  - NAUSEA [None]
  - NON-CARDIAC CHEST PAIN [None]
  - PANCYTOPENIA [None]
  - PRODUCTIVE COUGH [None]
  - PYREXIA [None]
  - VOMITING [None]
  - WEIGHT DECREASED [None]
